FAERS Safety Report 7155848-X (Version None)
Quarter: 2010Q4

REPORT INFORMATION
  Report Type: 
  Country: None (occurrence: None)
  Receive Date: 20101214
  Receipt Date: 20101203
  Transmission Date: 20110411
  Serious: Yes (Hospitalization)
  Sender: FDA-Public Use
  Company Number: US-JNJFOC-20101202908

PATIENT
  Sex: Female
  Weight: 33.4 kg

DRUGS (10)
  1. REMICADE [Suspect]
     Indication: COLITIS ULCERATIVE
     Route: 042
  2. MESALAMINE [Concomitant]
     Route: 048
  3. MESALAMINE [Concomitant]
     Route: 054
  4. VANCOMYCIN [Concomitant]
  5. LURIDE [Concomitant]
  6. DIGESTIVE ENZYMES [Concomitant]
  7. MULTI-VITAMINS [Concomitant]
  8. VITAMIN D [Concomitant]
  9. SLOW FE [Concomitant]
  10. VIACTIV CALCIUM CHEWS [Concomitant]

REACTIONS (1)
  - HYPOKALAEMIA [None]
